FAERS Safety Report 6678222-9 (Version None)
Quarter: 2010Q2

REPORT INFORMATION
  Report Type: 
  Country: None (occurrence: None)
  Receive Date: 20100408
  Receipt Date: 20100408
  Transmission Date: 20101027
  Serious: Yes (Hospitalization)
  Sender: FDA-Public Use
  Company Number: None

PATIENT
  Sex: Male
  Weight: 76 kg

DRUGS (4)
  1. SODIUM STIBOGLUCONATE [Suspect]
     Indication: METASTATIC MALIGNANT MELANOMA
     Dosage: 2400 MG DAILY X 4-MONTHLY IV
     Route: 042
     Dates: start: 20100308, end: 20100311
  2. CISPLATIN [Concomitant]
  3. VINBLASTINE SULFATE [Concomitant]
  4. DACARBAZINE [Concomitant]

REACTIONS (1)
  - PNEUMONIA [None]
